FAERS Safety Report 11664888 (Version 1)
Quarter: 2015Q4

REPORT INFORMATION
  Report Type: Spontaneous
  Country: US (occurrence: None)
  Receive Date: 20151026
  Receipt Date: 20151026
  Transmission Date: 20160304
  Serious: Yes (Disabling, Other)
  Sender: FDA-Public Use
  Company Number: None

PATIENT
  Age: 56 Year
  Sex: Male
  Weight: 63.5 kg

DRUGS (4)
  1. TAMSULOSIN [Concomitant]
     Active Substance: TAMSULOSIN
  2. DULOXETINE HCL [Concomitant]
     Active Substance: DULOXETINE HYDROCHLORIDE
  3. GADOLINIUM [Suspect]
     Active Substance: GADOLINIUM
     Indication: SCAN WITH CONTRAST
     Dosage: W/MRI
     Route: 042
  4. TRUVADA [Concomitant]
     Active Substance: EMTRICITABINE\TENOFOVIR DISOPROXIL FUMARATE

REACTIONS (9)
  - Tremor [None]
  - Memory impairment [None]
  - Joint stiffness [None]
  - General physical health deterioration [None]
  - Iron deficiency anaemia [None]
  - Arthralgia [None]
  - Skin discolouration [None]
  - Hyperhidrosis [None]
  - Rash [None]

NARRATIVE: CASE EVENT DATE: 20090216
